FAERS Safety Report 21587802 (Version 2)
Quarter: 2022Q4

REPORT INFORMATION
  Report Type: Report from Study
  Country: US (occurrence: US)
  Receive Date: 20221114
  Receipt Date: 20221230
  Transmission Date: 20230113
  Serious: No
  Sender: FDA-Public Use
  Company Number: US-ABBVIE-4153772

PATIENT
  Sex: Female

DRUGS (3)
  1. HUMIRA [Suspect]
     Active Substance: ADALIMUMAB
     Indication: Hidradenitis
     Route: 058
  2. HUMIRA [Suspect]
     Active Substance: ADALIMUMAB
     Route: 058
  3. PFIZER-BIONTECH COVID-19 VACCINE [Suspect]
     Active Substance: TOZINAMERAN
     Indication: COVID-19 immunisation
     Dosage: 1 1 ONCE
     Route: 030

REACTIONS (5)
  - Sinusitis [Not Recovered/Not Resolved]
  - Ulcer [Not Recovered/Not Resolved]
  - Asthma [Not Recovered/Not Resolved]
  - Papule [Not Recovered/Not Resolved]
  - Diarrhoea [Not Recovered/Not Resolved]
